FAERS Safety Report 5302802-6 (Version None)
Quarter: 2007Q1

REPORT INFORMATION
  Report Type: 
  Country: None (occurrence: None)
  Receive Date: 20070201
  Receipt Date: 20061127
  Transmission Date: 20070707
  Serious: No
  Sender: FDA-Public Use
  Company Number: 2006PV025921

PATIENT
  Age: 76 Year
  Sex: Female

DRUGS (4)
  1. BYETTA [Suspect]
     Indication: DIABETES MELLITUS NON-INSULIN-DEPENDENT
     Dosage: BID;SC
     Route: 058
     Dates: start: 20061101
  2. GLIPIZIDE [Concomitant]
  3. METFORMIN HCL [Concomitant]
  4. BLOOD PRESSURE MEDICATION NOT OTHERWISE SPECIFIED [Concomitant]

REACTIONS (5)
  - ABDOMINAL PAIN UPPER [None]
  - CONSTIPATION [None]
  - EYE SWELLING [None]
  - RHINORRHOEA [None]
  - SOMNOLENCE [None]
